FAERS Safety Report 7240405-7 (Version None)
Quarter: 2011Q1

REPORT INFORMATION
  Report Type: 
  Country: None (occurrence: None)
  Receive Date: 20110118
  Receipt Date: 20110106
  Transmission Date: 20110831
  Serious: Yes (Other)
  Sender: FDA-Public Use
  Company Number: AXC-2011-00004

PATIENT
  Age: 82 Year
  Sex: Male
  Weight: 72 kg

DRUGS (7)
  1. DIGOXIN [Concomitant]
  2. LISINOPRIL [Concomitant]
  3. ATENOLOL [Concomitant]
  4. ASPIRIN [Concomitant]
  5. PHOTOFRIN [Suspect]
     Indication: NEUROENDOCRINE CARCINOMA OF THE SKIN
     Dosage: 0.8 MG/KG, SINGLE, INTRAVENOUS
     Route: 042
     Dates: start: 20101206, end: 20101206
  6. LUPRON [Concomitant]
  7. COUMADIN [Concomitant]

REACTIONS (1)
  - SKIN NECROSIS [None]
